FAERS Safety Report 9691754 (Version 2)
Quarter: 2013Q4

REPORT INFORMATION
  Report Type: Spontaneous
  Country: US (occurrence: US)
  Receive Date: 20131115
  Receipt Date: 20131213
  Transmission Date: 20140711
  Serious: No
  Sender: FDA-Public Use
  Company Number: US-B.I. PHARMACEUTICALS,INC./RIDGEFIELD-2013-BI-36966BP

PATIENT
  Age: 68 Year
  Sex: Female
  Weight: 119 kg

DRUGS (14)
  1. PRADAXA [Suspect]
     Indication: ATRIAL FIBRILLATION
     Dosage: 300 MG
     Route: 048
     Dates: start: 20110903
  2. LOSARTAN [Concomitant]
     Indication: HYPERTENSION
     Dosage: 100 MG
     Route: 048
     Dates: start: 201310
  3. ASPIRIN [Concomitant]
     Indication: CARDIAC DISORDER
     Dosage: 81 MG
     Route: 048
     Dates: start: 2010
  4. LASIX [Concomitant]
     Indication: FLUID RETENTION
     Dosage: 20 MG
     Route: 048
     Dates: start: 201306
  5. ALLOPURINOL [Concomitant]
     Indication: BLOOD URIC ACID INCREASED
     Dosage: 300 MG
     Route: 048
     Dates: start: 2010
  6. OXYCODONE [Concomitant]
     Indication: ARTHRALGIA
     Dosage: DOSE PER APPLICATION: 5-325 MG;
     Route: 048
     Dates: start: 2012
  7. JANUMET [Concomitant]
     Indication: DIABETES MELLITUS
     Dosage: STRENGTH: 50-500 MG; DAILY DOSE: 100 MG-1000 MG
     Route: 048
     Dates: start: 2011
  8. ALPHAGAN P [Concomitant]
     Indication: GLAUCOMA
     Dosage: STRENGTH: 1 DROP IN EACH EYE; DAILY DOSE: 4 DROPS
     Dates: start: 2006
  9. FLEXERIL [Concomitant]
     Indication: MUSCLE SPASMS
     Route: 048
     Dates: start: 2012
  10. LEVOXYL [Concomitant]
     Indication: HYPOTHYROIDISM
     Dosage: 100 MCG
     Route: 048
     Dates: start: 2010
  11. TEKTURNA HCT [Concomitant]
     Indication: HYPERTENSION
     Dosage: 1 ANZ
     Route: 048
     Dates: start: 2011
  12. VITAMIN D2 [Concomitant]
     Indication: VITAMIN SUPPLEMENTATION
     Dosage: 50000 U
     Route: 048
  13. ATENOLOL [Concomitant]
     Indication: CARDIOMEGALY
     Dosage: 100 MG
     Route: 048
     Dates: start: 2009
  14. CLONIDINE [Concomitant]
     Indication: BLOOD PRESSURE SYSTOLIC
     Dosage: PRN
     Route: 048
     Dates: start: 201310

REACTIONS (3)
  - Arthritis [Recovered/Resolved]
  - Blood pressure increased [Not Recovered/Not Resolved]
  - Hypertension [Not Recovered/Not Resolved]
